FAERS Safety Report 9813074 (Version 8)
Quarter: 2015Q4

REPORT INFORMATION
  Report Type: Report from Study
  Country: US (occurrence: US)
  Receive Date: 20140113
  Receipt Date: 20151102
  Transmission Date: 20160305
  Serious: Yes (Hospitalization)
  Sender: FDA-Public Use
  Company Number: US-SANOFI-AVENTIS-2013SA026106

PATIENT
  Age: 25 Year
  Sex: Female

DRUGS (11)
  1. TYSABRI [Concomitant]
     Active Substance: NATALIZUMAB
     Dates: start: 20130315, end: 20130601
  2. AUBAGIO [Suspect]
     Active Substance: TERIFLUNOMIDE
     Indication: MULTIPLE SCLEROSIS
     Route: 048
     Dates: end: 20130401
  3. COPAXONE [Concomitant]
     Active Substance: GLATIRAMER ACETATE
     Indication: MULTIPLE SCLEROSIS
     Dates: start: 20130101, end: 20130101
  4. AVONEX [Concomitant]
     Active Substance: INTERFERON BETA-1A
     Dates: start: 20130101, end: 20130101
  5. AUBAGIO [Suspect]
     Active Substance: TERIFLUNOMIDE
     Indication: MULTIPLE SCLEROSIS
     Route: 048
     Dates: start: 20130110
  6. TECFIDERA [Concomitant]
     Active Substance: DIMETHYL FUMARATE
     Indication: MULTIPLE SCLEROSIS
     Dates: start: 20130602, end: 20130801
  7. AUBAGIO [Suspect]
     Active Substance: TERIFLUNOMIDE
     Indication: MULTIPLE SCLEROSIS
     Route: 065
     Dates: start: 20130101, end: 20130101
  8. TYSABRI [Concomitant]
     Active Substance: NATALIZUMAB
     Dates: start: 20120401, end: 20121220
  9. AUBAGIO [Suspect]
     Active Substance: TERIFLUNOMIDE
     Indication: MULTIPLE SCLEROSIS
     Route: 048
     Dates: start: 20130920, end: 20140106
  10. GILENYA [Concomitant]
     Active Substance: FINGOLIMOD HYDROCHLORIDE
     Indication: MULTIPLE SCLEROSIS
     Dates: start: 20130101, end: 20130101
  11. AUBAGIO [Suspect]
     Active Substance: TERIFLUNOMIDE
     Indication: MULTIPLE SCLEROSIS
     Route: 065
     Dates: start: 20130219, end: 20130314

REACTIONS (10)
  - Alopecia [Not Recovered/Not Resolved]
  - Hypersensitivity [Not Recovered/Not Resolved]
  - Pharyngeal hypoaesthesia [Unknown]
  - Hypoaesthesia [Unknown]
  - Heart rate increased [Unknown]
  - Pruritus [Unknown]
  - Urinary incontinence [Unknown]
  - Nausea [Not Recovered/Not Resolved]
  - Dysphagia [Unknown]
  - White blood cell count increased [Unknown]

NARRATIVE: CASE EVENT DATE: 2013
